FAERS Safety Report 7853135-5 (Version None)
Quarter: 2011Q4

REPORT INFORMATION
  Report Type: 
  Country: None (occurrence: None)
  Receive Date: 20111026
  Receipt Date: 20111021
  Transmission Date: 20120403
  Serious: Yes (Hospitalization)
  Sender: FDA-Public Use
  Company Number: DE-MERCK-1110USA03342

PATIENT
  Age: 47 Year
  Sex: Female

DRUGS (2)
  1. CISPLATIN [Concomitant]
     Route: 065
  2. DECADRON [Suspect]
     Route: 048

REACTIONS (1)
  - AORTIC THROMBOSIS [None]
